FAERS Safety Report 17447288 (Version 1)
Quarter: 2020Q1

REPORT INFORMATION
  Report Type: Spontaneous
  Country: US (occurrence: US)
  Receive Date: 20200221
  Receipt Date: 20200221
  Transmission Date: 20200409
  Serious: No
  Sender: FDA-Public Use
  Company Number: US-AMNEAL PHARMACEUTICALS-2019-AMRX-02929

PATIENT
  Sex: Female

DRUGS (1)
  1. ESTRADIOL TRANSDERMAL SYSTEM [Suspect]
     Active Substance: ESTRADIOL
     Indication: HYSTEROSALPINGO-OOPHORECTOMY
     Dosage: 0.05 MILLIGRAM, DAILY
     Route: 065
     Dates: end: 201911

REACTIONS (2)
  - Hot flush [Recovered/Resolved]
  - Depression [Recovered/Resolved]
